FAERS Safety Report 9196512 (Version 3)
Quarter: 2013Q3

REPORT INFORMATION
  Report Type: Spontaneous
  Country: US (occurrence: US)
  Receive Date: 20130328
  Receipt Date: 20130826
  Transmission Date: 20140515
  Serious: Yes (Hospitalization, Other)
  Sender: FDA-Public Use
  Company Number: US-PFIZER INC-2013094160

PATIENT
  Age: 58 Year
  Sex: Male

DRUGS (1)
  1. ADVIL [Suspect]
     Indication: PAIN IN EXTREMITY
     Dosage: ONE GEL CAPSULE
     Route: 048
     Dates: start: 20130319, end: 20130319

REACTIONS (3)
  - Anaphylactic reaction [Unknown]
  - Apparent death [Unknown]
  - Product label issue [Unknown]
